FAERS Safety Report 16079464 (Version 1)
Quarter: 2019Q1

REPORT INFORMATION
  Report Type: Spontaneous
  Country: CA (occurrence: CA)
  Receive Date: 20190315
  Receipt Date: 20190315
  Transmission Date: 20190418
  Serious: Yes (Other)
  Sender: FDA-Public Use
  Company Number: CA-SHIRE-CA201908198

PATIENT

DRUGS (3)
  1. HYLO DUAL [Concomitant]
     Indication: PRODUCT USED FOR UNKNOWN INDICATION
  2. XIIDRA [Suspect]
     Active Substance: LIFITEGRAST
     Indication: DRY EYE
     Dosage: 1 GTT DROPS, 2X/DAY:BID
     Route: 047
  3. MULTIPLE VITAMINS [Concomitant]
     Active Substance: VITAMINS
     Indication: PRODUCT USED FOR UNKNOWN INDICATION

REACTIONS (13)
  - Aphonia [Recovered/Resolved]
  - Chest discomfort [Recovered/Resolved]
  - Instillation site discomfort [Recovered/Resolved]
  - Vision blurred [Recovered/Resolved]
  - Nasal congestion [Recovered/Resolved]
  - Throat tightness [Recovered/Resolved]
  - Chest pain [Recovered/Resolved]
  - Nasopharyngitis [Recovered/Resolved]
  - Dysgeusia [Recovered/Resolved]
  - Cardiac discomfort [Recovered/Resolved]
  - Rhinorrhoea [Recovered/Resolved]
  - Nasal oedema [Recovered/Resolved]
  - Instillation site pain [Recovered/Resolved]
